FAERS Safety Report 21719900 (Version 1)
Quarter: 2022Q4

REPORT INFORMATION
  Report Type: Report from Study
  Country: US (occurrence: US)
  Receive Date: 20221213
  Receipt Date: 20221213
  Transmission Date: 20230113
  Serious: Yes (Death)
  Sender: FDA-Public Use
  Company Number: US-HLS-202000015

PATIENT
  Age: 71 Year
  Sex: Male

DRUGS (1)
  1. CLOZAPINE [Suspect]
     Active Substance: CLOZAPINE
     Indication: Mania
     Dosage: LOW DOSE LIKE 50
     Route: 065
     Dates: start: 2019

REACTIONS (3)
  - Neutrophil count increased [Unknown]
  - Death [Fatal]
  - Off label use [Fatal]

NARRATIVE: CASE EVENT DATE: 20190101
